FAERS Safety Report 5082666-9 (Version None)
Quarter: 2006Q3

REPORT INFORMATION
  Report Type: 
  Country: None (occurrence: None)
  Receive Date: 20060817
  Receipt Date: 20060726
  Transmission Date: 20061208
  Serious: Yes (Life-Threatening, Hospitalization, Other)
  Sender: FDA-Public Use
  Company Number: PHNR2006AU00978

PATIENT
  Age: 86 Year
  Sex: Male

DRUGS (1)
  1. ZOMETA [Suspect]
     Indication: PROSTATE CANCER METASTATIC
     Dosage: 4 MG, QMO
     Dates: start: 20060602, end: 20060630

REACTIONS (4)
  - BRADYCARDIA [None]
  - CARDIAC PACEMAKER INSERTION [None]
  - HYPOTENSION [None]
  - NAUSEA [None]
